FAERS Safety Report 24774687 (Version 2)
Quarter: 2024Q4

REPORT INFORMATION
  Report Type: Report from Study
  Country: US (occurrence: US)
  Receive Date: 20241226
  Receipt Date: 20241229
  Transmission Date: 20250115
  Serious: Yes (Other)
  Sender: ABBVIE
  Company Number: US-ABBVIE-6061453

PATIENT
  Sex: Male

DRUGS (1)
  1. HUMIRA [Suspect]
     Active Substance: ADALIMUMAB
     Indication: Psoriasis
     Route: 058

REACTIONS (6)
  - Unevaluable event [Unknown]
  - Dizziness [Unknown]
  - Ulcer [Unknown]
  - Faeces discoloured [Unknown]
  - Bacterial infection [Unknown]
  - Malaise [Unknown]
